FAERS Safety Report 20367180 (Version 1)
Quarter: 2022Q1

REPORT INFORMATION
  Report Type: Spontaneous
  Country: KR (occurrence: KR)
  Receive Date: 20220123
  Receipt Date: 20220123
  Transmission Date: 20220423
  Serious: Yes (Other)
  Sender: FDA-Public Use
  Company Number: KR-JNJFOC-20220132980

PATIENT
  Age: 20 Year
  Sex: Female

DRUGS (2)
  1. TYLENOL 8HR [Suspect]
     Active Substance: ACETAMINOPHEN
     Indication: Inflammation
     Route: 065
     Dates: start: 202201
  2. ALMAGATE [Suspect]
     Active Substance: ALMAGATE
     Indication: Inflammation
     Route: 065
     Dates: start: 202201

REACTIONS (2)
  - Product use in unapproved indication [Unknown]
  - Anaphylactic reaction [Unknown]

NARRATIVE: CASE EVENT DATE: 20220101
